FAERS Safety Report 8481410-2 (Version None)
Quarter: 2012Q3

REPORT INFORMATION
  Report Type: 
  Country: None (occurrence: None)
  Receive Date: 20120702
  Receipt Date: 20120626
  Transmission Date: 20120928
  Serious: Yes (Hospitalization)
  Sender: FDA-Public Use
  Company Number: US-BAYER-2011-093397

PATIENT
  Age: 22 Year
  Sex: Female
  Weight: 97.506 kg

DRUGS (8)
  1. COLACE [Concomitant]
     Dosage: 100 MG, BID
  2. NORCO [Concomitant]
     Dosage: 1-2 TABLETS, EVERY 4-6H OR AS NEEDED
  3. YAZ [Suspect]
     Indication: PREMENSTRUAL SYNDROME
     Dosage: UNK
     Dates: start: 20090106, end: 20090812
  4. YAZ [Suspect]
     Indication: MENORRHAGIA
  5. FLUTICASONE PROPIONATE [Concomitant]
  6. SINGULAIR [Concomitant]
     Dosage: 10 MG, HS
     Dates: start: 20090101, end: 20090801
  7. ADVAIR DISKUS 100/50 [Concomitant]
     Dosage: 150 MG, TWO PUFFS DAILY
     Route: 045
     Dates: start: 20010501
  8. ALBUTEROL [Concomitant]
     Dosage: 2 PUFFS, BID
     Route: 045
     Dates: start: 20010501

REACTIONS (14)
  - PAIN IN EXTREMITY [None]
  - GAIT DISTURBANCE [None]
  - PULMONARY EMBOLISM [None]
  - OEDEMA PERIPHERAL [None]
  - DYSSTASIA [None]
  - GENERAL PHYSICAL HEALTH DETERIORATION [None]
  - ANXIETY [None]
  - DYSPNOEA [None]
  - SKIN DISCOLOURATION [None]
  - DECREASED ACTIVITY [None]
  - DEEP VEIN THROMBOSIS [None]
  - INJURY [None]
  - SKIN WARM [None]
  - EMOTIONAL DISTRESS [None]
